FAERS Safety Report 19804471 (Version 2)
Quarter: 2022Q3

REPORT INFORMATION
  Report Type: Spontaneous
  Country: US (occurrence: None)
  Receive Date: 20210908
  Receipt Date: 20220907
  Transmission Date: 20221026
  Serious: No
  Sender: FDA-Public Use
  Company Number: US-FARMAPROD-202106-0979

PATIENT
  Sex: Female

DRUGS (3)
  1. OXERVATE [Suspect]
     Active Substance: CENEGERMIN-BKBJ
     Indication: Neurotrophic keratopathy
     Route: 047
     Dates: start: 20210610
  2. MINERAL OIL [Concomitant]
     Active Substance: MINERAL OIL
     Dosage: EYE LUBRICANT EVERY FOUR TO SIX TIMES DAILY
  3. serum tears [Concomitant]

REACTIONS (2)
  - Incorrect drug administration rate [Unknown]
  - Eye pain [Unknown]
